FAERS Safety Report 11471833 (Version 1)
Quarter: 2015Q3

REPORT INFORMATION
  Report Type: Spontaneous
  Country: CN (occurrence: CN)
  Receive Date: 20150908
  Receipt Date: 20150908
  Transmission Date: 20151125
  Serious: Yes (Other)
  Sender: FDA-Public Use
  Company Number: CN-JNJFOC-20150821859

PATIENT
  Age: 53 Year
  Sex: Female

DRUGS (1)
  1. NIZORAL [Suspect]
     Active Substance: KETOCONAZOLE
     Indication: ONYCHOMYCOSIS
     Route: 048

REACTIONS (8)
  - Tremor [Recovered/Resolved]
  - Crying [Recovered/Resolved]
  - Muscular weakness [Recovered/Resolved]
  - Euphoric mood [Recovered/Resolved]
  - Off label use [Unknown]
  - Neck pain [Recovered/Resolved]
  - Radial nerve palsy [Recovered/Resolved]
  - Headache [Recovered/Resolved]
